FAERS Safety Report 4450337-5 (Version None)
Quarter: 2004Q3

REPORT INFORMATION
  Report Type: 
  Country: None (occurrence: None)
  Receive Date: 20040914
  Receipt Date: 20040902
  Transmission Date: 20050211
  Serious: Yes (Death, Hospitalization)
  Sender: FDA-Public Use
  Company Number: D01200403208

PATIENT
  Age: 60 Year
  Sex: Male

DRUGS (5)
  1. (OXALIPLATIN) - SOLUTION - 85 MG/M2 [Suspect]
     Dosage: 85 MG/M2 Q2W, INTRAVENOUS NOS: TIME TO ONSET : 2 WEEKS 3 DAYS
     Route: 042
     Dates: start: 20040729, end: 20040729
  2. FLUOROURACIL [Suspect]
     Dosage: 400 MG/M2 AS IV BOLUS THEN 600 MG/M2 AS 22 HOURS CONTINUOUS INFUSION D1-D2 Q2W, INTRAVENOUS NOS
     Route: 042
     Dates: start: 20040729, end: 20040730
  3. (SR57746 OR PLACEBO) - CAPSULE - 1 MG [Suspect]
     Indication: CHEMOTHERAPY NEUROTOXICITY ATTENUATION
     Dosage: 1 MG QD ORAL
     Route: 048
     Dates: start: 20040310, end: 20040812
  4. (SR57746 OR PLACEBO) - CAPSULE - 1 MG [Suspect]
     Indication: COLORECTAL CANCER METASTATIC
     Dosage: 1 MG QD ORAL
     Route: 048
     Dates: start: 20040310, end: 20040812
  5. LEUCOVORIN CALCIUM [Suspect]
     Dosage: 200 MG/M2 AS 2 HOURS INFUSION ON D1-D2 Q2W, INTRAVENOUS NOS: TIME TO ONSET : 2 WEEKS 2 DAYS
     Route: 042
     Dates: start: 20040729, end: 20040730

REACTIONS (3)
  - BLOOD CREATININE INCREASED [None]
  - NEUTROPENIA [None]
  - RESPIRATORY TRACT HAEMORRHAGE [None]
